FAERS Safety Report 21510841 (Version 1)
Quarter: 2022Q4

REPORT INFORMATION
  Report Type: Spontaneous
  Country: US (occurrence: US)
  Receive Date: 20221026
  Receipt Date: 20221026
  Transmission Date: 20230112
  Serious: Yes (Other)
  Sender: FDA-Public Use
  Company Number: US-JNJFOC-20221026327

PATIENT
  Sex: Male

DRUGS (2)
  1. INVEGA HAFYERA [Suspect]
     Active Substance: PALIPERIDONE PALMITATE
     Indication: Product used for unknown indication
     Dosage: HIS NEXT INJECTION IS DUE 17/NOV/2022
     Route: 030
  2. INVEGA HAFYERA [Suspect]
     Active Substance: PALIPERIDONE PALMITATE

REACTIONS (1)
  - Dialysis [Unknown]

NARRATIVE: CASE EVENT DATE: 20220101
